FAERS Safety Report 9757572 (Version 3)
Quarter: 2014Q2

REPORT INFORMATION
  Report Type: Report from Study
  Country: BR (occurrence: BR)
  Receive Date: 20131216
  Receipt Date: 20140515
  Transmission Date: 20141212
  Serious: Yes (Other)
  Sender: FDA-Public Use
  Company Number: BR-ROCHE-1317786

PATIENT
  Sex: Female
  Weight: 55 kg

DRUGS (4)
  1. ACTEMRA [Suspect]
     Indication: RHEUMATOID ARTHRITIS
     Route: 065
     Dates: start: 20131119
  2. NIMESULIDA [Concomitant]
  3. METHOTREXATE [Concomitant]
  4. LISADOR [Concomitant]
     Indication: PAIN
     Route: 065

REACTIONS (5)
  - Choking sensation [Recovered/Resolved]
  - Foot deformity [Not Recovered/Not Resolved]
  - Foot deformity [Unknown]
  - Swelling [Recovered/Resolved]
  - Fatigue [Recovered/Resolved]
